FAERS Safety Report 16076341 (Version 2)
Quarter: 2022Q2

REPORT INFORMATION
  Report Type: Spontaneous
  Country: US (occurrence: US)
  Receive Date: 20190315
  Receipt Date: 20220426
  Transmission Date: 20220721
  Serious: No
  Sender: FDA-Public Use
  Company Number: US-PFIZER INC-2019110024

PATIENT
  Age: 11 Year
  Sex: Male

DRUGS (2)
  1. EUCRISA [Suspect]
     Active Substance: CRISABOROLE
     Indication: Dermatitis atopic
     Dosage: APPLY TO AFFECTED AREAS TWICE A DAY IN A THIN FILM
     Route: 061
     Dates: start: 201810
  2. EUCRISA [Suspect]
     Active Substance: CRISABOROLE
     Indication: Eczema
     Dosage: APPLY TO AFFECTED AREAS ON HANDS BID AS NEEDED
     Route: 061

REACTIONS (3)
  - Burning sensation [Unknown]
  - Eczema [Unknown]
  - Hyperhidrosis [Unknown]
